FAERS Safety Report 25739322 (Version 1)
Quarter: 2025Q3

REPORT INFORMATION
  Report Type: Spontaneous
  Country: CA (occurrence: CA)
  Receive Date: 20250829
  Receipt Date: 20250829
  Transmission Date: 20251021
  Serious: Yes (Hospitalization, Other)
  Sender: Kenvue
  Company Number: CA-KENVUE-20250808260

PATIENT

DRUGS (42)
  1. ACETAMINOPHEN [Suspect]
     Active Substance: ACETAMINOPHEN
     Indication: Pyrexia
     Route: 065
  2. ACETAMINOPHEN [Suspect]
     Active Substance: ACETAMINOPHEN
     Indication: Illness
  3. ACETAMINOPHEN [Suspect]
     Active Substance: ACETAMINOPHEN
     Indication: Product used for unknown indication
  4. ASPIRIN [Suspect]
     Active Substance: ASPIRIN
     Indication: Product used for unknown indication
     Route: 065
  5. AMLODIPINE BESYLATE [Suspect]
     Active Substance: AMLODIPINE BESYLATE
     Indication: Product used for unknown indication
     Route: 065
  6. MYCOPHENOLATE MOFETIL [Suspect]
     Active Substance: MYCOPHENOLATE MOFETIL
     Indication: Immunosuppressant drug therapy
     Route: 065
  7. PREDNISONE [Suspect]
     Active Substance: PREDNISONE
     Indication: Immunosuppressant drug therapy
     Route: 065
  8. PREDNISONE [Suspect]
     Active Substance: PREDNISONE
     Dosage: 0.1 MILLIGRAM/KILOGRAM, ONCE A DAY (1 EVERY 24 HOURS)
     Route: 065
  9. SIROLIMUS [Suspect]
     Active Substance: SIROLIMUS
     Indication: Immunosuppressant drug therapy
     Route: 065
  10. TACROLIMUS [Suspect]
     Active Substance: TACROLIMUS
     Indication: Immunosuppressant drug therapy
     Route: 065
  11. SULFAMETHOXAZOLE\TRIMETHOPRIM [Suspect]
     Active Substance: SULFAMETHOXAZOLE\TRIMETHOPRIM
     Indication: Pneumocystis jirovecii pneumonia
     Route: 065
  12. SULFAMETHOXAZOLE\TRIMETHOPRIM [Suspect]
     Active Substance: SULFAMETHOXAZOLE\TRIMETHOPRIM
     Indication: Antifungal prophylaxis
  13. AMLODIPINE [Suspect]
     Active Substance: AMLODIPINE BESYLATE
     Indication: Product used for unknown indication
     Route: 065
  14. ASPIRIN [Suspect]
     Active Substance: ASPIRIN
     Indication: Product used for unknown indication
     Route: 065
  15. AMLODIPINE BESYLATE [Suspect]
     Active Substance: AMLODIPINE BESYLATE
     Indication: Product used for unknown indication
     Route: 065
  16. SULFAMETHOXAZOLE\TRIMETHOPRIM [Suspect]
     Active Substance: SULFAMETHOXAZOLE\TRIMETHOPRIM
     Indication: Pneumocystis jirovecii pneumonia
     Route: 042
  17. DAPSONE [Concomitant]
     Active Substance: DAPSONE
     Indication: Pneumocystis jirovecii pneumonia
     Dosage: 1.3 MILLIGRAM/KILOGRAM, ONCE A DAY (1 EVERY 24 HOURS)
     Route: 065
  18. DAPSONE [Concomitant]
     Active Substance: DAPSONE
     Indication: Antifungal prophylaxis
     Dosage: 2.0 MILLIGRAM/KILOGRAM, ONCE A DAY (1 EVERY 24 HOURS)
     Route: 065
  19. DAPSONE [Concomitant]
     Active Substance: DAPSONE
     Indication: Asplenia
     Route: 065
  20. DAPSONE [Concomitant]
     Active Substance: DAPSONE
     Indication: Prophylaxis
     Dosage: 1.0 MILLIGRAM/KILOGRAM, ONCE A DAY (1 EVERY 24 HOURS)
     Route: 065
  21. DAPSONE [Concomitant]
     Active Substance: DAPSONE
     Indication: Asplenia
     Dosage: 1.0 MILLIGRAM/KILOGRAM, ONCE A DAY
     Route: 065
  22. DAPSONE [Concomitant]
     Active Substance: DAPSONE
     Route: 065
  23. DAPSONE [Concomitant]
     Active Substance: DAPSONE
     Dosage: 1.3 MILLIGRAM/KILOGRAM, ONCE A DAY
     Route: 065
  24. DAPSONE [Concomitant]
     Active Substance: DAPSONE
     Dosage: 2 MILLIGRAM/KILOGRAM, ONCE A DAY
     Route: 065
  25. DAPSONE [Concomitant]
     Active Substance: DAPSONE
     Route: 061
  26. ENALAPRIL [Concomitant]
     Active Substance: ENALAPRIL
     Indication: Product used for unknown indication
     Route: 065
  27. MYCOPHENOLATE MOFETIL [Concomitant]
     Active Substance: MYCOPHENOLATE MOFETIL
     Indication: Immunosuppression
     Route: 065
  28. MYCOPHENOLATE MOFETIL [Concomitant]
     Active Substance: MYCOPHENOLATE MOFETIL
     Indication: Immunosuppressant drug therapy
  29. SIROLIMUS [Concomitant]
     Active Substance: SIROLIMUS
     Indication: Immunosuppression
     Route: 065
  30. SIROLIMUS [Concomitant]
     Active Substance: SIROLIMUS
     Indication: Immunosuppressant drug therapy
  31. SULFAMETHOXAZOLE\TRIMETHOPRIM [Concomitant]
     Active Substance: SULFAMETHOXAZOLE\TRIMETHOPRIM
     Indication: Antifungal prophylaxis
     Route: 065
  32. SULFAMETHOXAZOLE\TRIMETHOPRIM [Concomitant]
     Active Substance: SULFAMETHOXAZOLE\TRIMETHOPRIM
     Indication: Prophylaxis
  33. TACROLIMUS [Concomitant]
     Active Substance: TACROLIMUS
     Indication: Immunosuppression
     Route: 065
  34. TACROLIMUS [Concomitant]
     Active Substance: TACROLIMUS
     Indication: Immunosuppressant drug therapy
  35. OMALIZUMAB [Concomitant]
     Active Substance: OMALIZUMAB
     Indication: Linear IgA disease
     Route: 065
  36. PREDNISONE [Concomitant]
     Active Substance: PREDNISONE
     Indication: Immunosuppressant drug therapy
     Route: 065
  37. PREDNISONE [Concomitant]
     Active Substance: PREDNISONE
     Route: 065
  38. AMOXICILLIN [Concomitant]
     Active Substance: AMOXICILLIN
     Indication: Asplenia
     Route: 065
  39. METHYLENE BLUE [Concomitant]
     Active Substance: METHYLENE BLUE
     Indication: Methaemoglobinaemia
     Route: 065
  40. METHYLPREDNISOLONE [Concomitant]
     Active Substance: METHYLPREDNISOLONE
     Indication: Methaemoglobinaemia
     Dosage: 1.0 MILLIGRAM/KILOGRAM, ONCE A DAY
     Route: 065
  41. PIPERACILLIN AND TAZOBACTAM [Concomitant]
     Active Substance: PIPERACILLIN SODIUM\TAZOBACTAM SODIUM
     Indication: Evidence based treatment
     Route: 065
  42. VANCOMYCIN [Concomitant]
     Active Substance: VANCOMYCIN
     Indication: Evidence based treatment
     Route: 065

REACTIONS (2)
  - Eosinophilia [Recovered/Resolved]
  - Linear IgA disease [Recovered/Resolved]
